FAERS Safety Report 6072159-4 (Version None)
Quarter: 2009Q1

REPORT INFORMATION
  Report Type: 
  Country: None (occurrence: None)
  Receive Date: 20090210
  Receipt Date: 20090202
  Transmission Date: 20090719
  Serious: Yes (Other)
  Sender: FDA-Public Use
  Company Number: B0545175A

PATIENT
  Age: 48 Year
  Sex: Female
  Weight: 58 kg

DRUGS (3)
  1. DEROXAT [Suspect]
     Dosage: 40MG PER DAY
     Route: 048
     Dates: start: 20080117, end: 20081112
  2. DEPAMIDE [Suspect]
     Route: 048
     Dates: start: 20080822, end: 20081015
  3. ZYRTEC [Suspect]
     Dosage: 1TAB PER DAY
     Route: 048
     Dates: start: 19810101

REACTIONS (5)
  - ANOREXIA [None]
  - FATIGUE [None]
  - HEPATITIS [None]
  - NAUSEA [None]
  - TRANSAMINASES INCREASED [None]
